FAERS Safety Report 8719252 (Version 2)
Quarter: 2012Q4

REPORT INFORMATION
  Report Type: 
  Country: FR (occurrence: FR)
  Receive Date: 20120813
  Receipt Date: 20120918
  Transmission Date: 20130627
  Serious: Yes (Other)
  Sender: FDA-Public Use
  Company Number: FR-BRISTOL-MYERS SQUIBB COMPANY-16838278

PATIENT
  Age: 61 Year
  Sex: Female

DRUGS (1)
  1. KENACORT RETARD 80 INJ [Suspect]
     Dosage: Dose: 80 mg in 1 single intake
Formulation:. Kenacort Retard 80 mg/2 ml, suspension for injection
     Route: 030
     Dates: start: 201108

REACTIONS (2)
  - Injection site atrophy [Not Recovered/Not Resolved]
  - Muscle atrophy [None]
